FAERS Safety Report 7532609-0 (Version None)
Quarter: 2011Q2

REPORT INFORMATION
  Report Type: 
  Country: None (occurrence: None)
  Receive Date: 20110608
  Receipt Date: 20110606
  Transmission Date: 20111010
  Serious: Yes (Death)
  Sender: FDA-Public Use
  Company Number: PHHY2011BR49109

PATIENT
  Sex: Female
  Weight: 32 kg

DRUGS (2)
  1. PHENYTOIN [Concomitant]
     Dosage: 1 DF, BID
     Route: 048
  2. EXELON [Suspect]
     Dosage: UNK
     Route: 062

REACTIONS (1)
  - CARDIAC ARREST [None]
